FAERS Safety Report 7328394-8 (Version None)
Quarter: 2011Q1

REPORT INFORMATION
  Report Type: 
  Country: None (occurrence: None)
  Receive Date: 20110303
  Receipt Date: 20110223
  Transmission Date: 20110831
  Serious: Yes (Other)
  Sender: FDA-Public Use
  Company Number: FR-SANOFI-AVENTIS-2011SA006163

PATIENT
  Age: 89 Year
  Sex: Female
  Weight: 79 kg

DRUGS (2)
  1. SOTALOL HCL [Concomitant]
     Indication: ARRHYTHMIA
     Route: 065
     Dates: end: 20110103
  2. MULTAQ [Suspect]
     Indication: ARRHYTHMIA
     Route: 048
     Dates: start: 20110104

REACTIONS (6)
  - CARDIAC FAILURE [None]
  - PALPITATIONS [None]
  - DYSPNOEA [None]
  - DIZZINESS [None]
  - WEIGHT INCREASED [None]
  - OEDEMA PERIPHERAL [None]
